FAERS Safety Report 6764247-1 (Version None)
Quarter: 2010Q2

REPORT INFORMATION
  Report Type: 
  Country: None (occurrence: None)
  Receive Date: 20100610
  Receipt Date: 20100607
  Transmission Date: 20101027
  Serious: Yes (Death)
  Sender: FDA-Public Use
  Company Number: IT-GILEAD-2010-0029659

PATIENT
  Age: 45 Year
  Sex: Male

DRUGS (19)
  1. CIDOFOVIR [Suspect]
     Indication: PROGRESSIVE MULTIFOCAL LEUKOENCEPHALOPATHY
  2. DEXAMETHASONE [Concomitant]
     Indication: MANTLE CELL LYMPHOMA
     Dates: start: 20001001, end: 20010801
  3. DEXAMETHASONE [Concomitant]
     Indication: BONE MARROW FAILURE
     Dates: start: 20051101, end: 20060201
  4. MITOXANTRONE [Concomitant]
     Indication: MANTLE CELL LYMPHOMA
  5. MELPHALAN [Concomitant]
     Indication: MANTLE CELL LYMPHOMA
  6. RITUXIMAB [Concomitant]
     Dates: start: 20020501, end: 20020601
  7. RITUXIMAB [Concomitant]
     Dates: start: 20070101, end: 20080401
  8. RITUXIMAB [Concomitant]
     Dates: start: 20001001, end: 20010801
  9. RITUXIMAB [Concomitant]
     Dates: start: 20051101, end: 20060201
  10. CYCLOPHOSPHAMIDE [Concomitant]
     Indication: BONE MARROW FAILURE
     Dates: start: 20051101, end: 20060201
  11. METHOTREXATE [Concomitant]
     Indication: PROPHYLAXIS AGAINST GRAFT VERSUS HOST DISEASE
  12. METHOTREXATE [Concomitant]
  13. CYCLOSPORINE [Concomitant]
  14. MIRTAZAPINE [Concomitant]
     Indication: PROGRESSIVE MULTIFOCAL LEUKOENCEPHALOPATHY
  15. RIPERIDONE [Concomitant]
     Indication: PROGRESSIVE MULTIFOCAL LEUKOENCEPHALOPATHY
  16. CYTARABINE [Concomitant]
     Indication: MANTLE CELL LYMPHOMA
     Dates: start: 20001001, end: 20010801
  17. CISPLATIN [Concomitant]
     Indication: MANTLE CELL LYMPHOMA
     Dates: start: 20001001, end: 20010801
  18. VINCRISTINE [Concomitant]
     Indication: BONE MARROW FAILURE
     Dates: start: 20051101, end: 20060201
  19. DOXORUBICIN HCL [Concomitant]
     Indication: BONE MARROW FAILURE
     Dates: start: 20051101, end: 20060201

REACTIONS (1)
  - DRUG INEFFECTIVE FOR UNAPPROVED INDICATION [None]
